FAERS Safety Report 7070481 (Version 2)
Quarter: 2013Q3

REPORT INFORMATION
  Report Type: Report from Study
  Country: US (occurrence: US)
  Receive Date: 20090803
  Receipt Date: 20130809
  Transmission Date: 20140515
  Serious: Yes (Other)
  Sender: FDA-Public Use
  Company Number: US-PFIZER INC-2009214729

PATIENT
  Age: 46 Year
  Sex: Male
  Weight: 77 kg

DRUGS (10)
  1. CHANTIX [Suspect]
     Indication: SMOKING CESSATION THERAPY
     Dosage: 0.5 MG, 1X/DAY
     Route: 048
     Dates: start: 2009, end: 2009
  2. CHANTIX [Suspect]
     Dosage: 0.5 MG, 2X/DAY
     Route: 048
     Dates: start: 2009, end: 2009
  3. CHANTIX [Suspect]
     Dosage: 1 MG, 2X/DAY
     Route: 048
     Dates: start: 20090410, end: 2009
  4. CHANTIX [Suspect]
     Dosage: 0.5 MG, 1X/DAY
     Dates: start: 200905, end: 200905
  5. CHANTIX [Suspect]
     Dosage: 1 MG, 2X/DAY
     Dates: start: 20090515
  6. DILANTIN [Concomitant]
     Dosage: UNK
  7. PRILOSEC [Concomitant]
     Dosage: UNK
  8. PHENOBARBITAL [Concomitant]
     Dosage: UNK
  9. TEGRETOL [Concomitant]
     Dosage: UNK
  10. SEROQUEL [Concomitant]
     Dosage: UNK

REACTIONS (7)
  - Suicidal ideation [Unknown]
  - Violence-related symptom [Unknown]
  - Parosmia [Unknown]
  - Dysgeusia [Unknown]
  - Anger [Unknown]
  - Substance use [Unknown]
  - Weight decreased [Unknown]
